FAERS Safety Report 17723836 (Version 3)
Quarter: 2020Q2

REPORT INFORMATION
  Report Type: Spontaneous
  Country: US (occurrence: US)
  Receive Date: 20200429
  Receipt Date: 20200521
  Transmission Date: 20200714
  Serious: No
  Sender: FDA-Public Use
  Company Number: US-SA-2020SA110594

PATIENT
  Age: 45 Year
  Sex: Female

DRUGS (1)
  1. CABLIVI [Suspect]
     Active Substance: CAPLACIZUMAB-YHDP
     Indication: THROMBOTIC MICROANGIOPATHY
     Dosage: 11 MG, QD
     Route: 058
     Dates: start: 20200425

REACTIONS (6)
  - Gingival bleeding [Unknown]
  - Burning sensation [Unknown]
  - Headache [Unknown]
  - Bone pain [Unknown]
  - Back pain [Unknown]
  - Hot flush [Unknown]

NARRATIVE: CASE EVENT DATE: 2020
